FAERS Safety Report 19441500 (Version 1)
Quarter: 2021Q2

REPORT INFORMATION
  Report Type: Spontaneous
  Country: US (occurrence: US)
  Receive Date: 20210618
  Receipt Date: 20210618
  Transmission Date: 20210717
  Serious: Yes (Hospitalization)
  Sender: FDA-Public Use
  Company Number: None

PATIENT
  Age: 52 Year
  Sex: Male
  Weight: 62.3 kg

DRUGS (1)
  1. CISPLATIN. [Suspect]
     Active Substance: CISPLATIN
     Dates: end: 20190924

REACTIONS (4)
  - Klebsiella test positive [None]
  - Corynebacterium test positive [None]
  - Respiratory failure [None]
  - Pneumonia aspiration [None]

NARRATIVE: CASE EVENT DATE: 20191007
